FAERS Safety Report 13519843 (Version 1)
Quarter: 2017Q2

REPORT INFORMATION
  Report Type: Report from Study
  Country: BR (occurrence: BR)
  Receive Date: 20170506
  Receipt Date: 20170506
  Transmission Date: 20170830
  Serious: Yes (Other)
  Sender: FDA-Public Use
  Company Number: BR-BRISTOL-MYERS SQUIBB COMPANY-BMS-2017-037796

PATIENT
  Age: 61 Year
  Sex: Female

DRUGS (2)
  1. DUOMO [Concomitant]
     Indication: PRODUCT USED FOR UNKNOWN INDICATION
     Route: 065
  2. ABATACEPT [Suspect]
     Active Substance: ABATACEPT
     Indication: RHEUMATOID ARTHRITIS
     Dosage: 125 MG, QWK
     Route: 058

REACTIONS (1)
  - Ankle operation [Unknown]

NARRATIVE: CASE EVENT DATE: 20170418
